FAERS Safety Report 4640296-4 (Version None)
Quarter: 2005Q2

REPORT INFORMATION
  Report Type: 
  Country: None (occurrence: None)
  Receive Date: 20050420
  Receipt Date: 20040310
  Transmission Date: 20051028
  Serious: No
  Sender: FDA-Public Use
  Company Number: US-GLAXOSMITHKLINE-A0502181A

PATIENT
  Sex: Female

DRUGS (2)
  1. ESKALITH [Suspect]
     Dosage: 450MG TWICE PER DAY
     Route: 048
  2. RISPERDAL [Concomitant]

REACTIONS (4)
  - HAEMATURIA [None]
  - KETONURIA [None]
  - POLLAKIURIA [None]
  - PROTEINURIA [None]
